FAERS Safety Report 8937775 (Version 1)
Quarter: 2012Q4

REPORT INFORMATION
  Report Type: 
  Country: US (occurrence: US)
  Receive Date: 20121130
  Receipt Date: 20121130
  Transmission Date: 20130627
  Serious: No
  Sender: FDA-Public Use
  Company Number: US-ASTRAZENECA-2012SE86362

PATIENT
  Age: 43 Year
  Sex: Female
  Weight: 81.6 kg

DRUGS (4)
  1. NEXIUM [Suspect]
     Indication: GASTROOESOPHAGEAL REFLUX DISEASE
     Route: 048
     Dates: start: 2011, end: 2012
  2. NEXIUM [Suspect]
     Indication: GASTROOESOPHAGEAL REFLUX DISEASE
     Route: 048
     Dates: start: 2012
  3. LEVOTHYROXINE [Concomitant]
     Indication: THYROID DISORDER
  4. AMLYTRIPTOLINE [Concomitant]

REACTIONS (5)
  - Increased upper airway secretion [Unknown]
  - Gastrooesophageal reflux disease [Unknown]
  - Multiple allergies [Unknown]
  - Off label use [Unknown]
  - Drug ineffective [Unknown]
